FAERS Safety Report 5408589-0 (Version None)
Quarter: 2007Q3

REPORT INFORMATION
  Report Type: 
  Country: None (occurrence: None)
  Receive Date: 20070808
  Receipt Date: 20070730
  Transmission Date: 20080115
  Serious: Yes (Death, Hospitalization, Other)
  Sender: FDA-Public Use
  Company Number: US-PFIZER INC-2006106300

PATIENT
  Sex: Male
  Weight: 87.1 kg

DRUGS (3)
  1. BEXTRA [Suspect]
     Indication: OSTEOARTHRITIS
     Dates: start: 20021101, end: 20030918
  2. CELEBREX [Suspect]
     Indication: OSTEOARTHRITIS
     Dates: start: 20021011, end: 20030918
  3. VIOXX [Suspect]
     Dates: start: 20000601, end: 20030918

REACTIONS (5)
  - ATRIAL FIBRILLATION [None]
  - CARDIAC FAILURE CONGESTIVE [None]
  - CARDIOVASCULAR DISORDER [None]
  - CEREBROVASCULAR ACCIDENT [None]
  - MYOCARDIAL INFARCTION [None]
